FAERS Safety Report 22637693 (Version 1)
Quarter: 2023Q2

REPORT INFORMATION
  Report Type: Spontaneous
  Country: US (occurrence: US)
  Receive Date: 20230626
  Receipt Date: 20230626
  Transmission Date: 20230721
  Serious: No
  Sender: FDA-Public Use
  Company Number: US-AMGEN-USASP2023106127

PATIENT
  Age: 68 Year
  Sex: Female

DRUGS (1)
  1. NEULASTA [Suspect]
     Active Substance: PEGFILGRASTIM
     Indication: White blood cell count decreased
     Dosage: UNK
     Route: 065

REACTIONS (8)
  - Mass [Unknown]
  - White blood cell count decreased [Unknown]
  - Pain [Unknown]
  - Induration [Unknown]
  - Back pain [Unknown]
  - Pain in extremity [Unknown]
  - Bone pain [Unknown]
  - Erythema [Unknown]

NARRATIVE: CASE EVENT DATE: 20230601
